FAERS Safety Report 10034079 (Version 1)
Quarter: 2014Q1

REPORT INFORMATION
  Report Type: Spontaneous
  Country: US (occurrence: None)
  Receive Date: 20140324
  Receipt Date: 20140324
  Transmission Date: 20141002
  Serious: Yes (Other)
  Sender: FDA-Public Use
  Company Number: None

PATIENT
  Age: 21 Year
  Sex: Male
  Weight: 79.38 kg

DRUGS (1)
  1. CETIRIZINE [Suspect]
     Indication: SEASONAL ALLERGY
     Route: 048
     Dates: start: 20040301, end: 20140321

REACTIONS (4)
  - Urticaria [None]
  - Pruritus [None]
  - Impaired work ability [None]
  - Drug dependence [None]
